FAERS Safety Report 9062730 (Version 1)
Quarter: 2013Q1

REPORT INFORMATION
  Report Type: Spontaneous
  Country: FR (occurrence: FR)
  Receive Date: 20130128
  Receipt Date: 20130128
  Transmission Date: 20140127
  Serious: Yes (Other)
  Sender: FDA-Public Use
  Company Number: FR-BRISTOL-MYERS SQUIBB COMPANY-17300179

PATIENT
  Age: 73 Year
  Sex: Male

DRUGS (3)
  1. ORENCIA [Suspect]
     Indication: RHEUMATOID ARTHRITIS
     Dosage: INTR ON UNK DATE,RESTART ON NOV12
     Dates: start: 201203, end: 201212
  2. CORTANCYL [Concomitant]
  3. IXPRIM [Concomitant]
     Dosage: 1DF:1 TAB OF 37,5 MG TRAMADOL  / 325 MG PARACETAMOL

REACTIONS (2)
  - Cataract [Unknown]
  - Drug ineffective [Unknown]
